FAERS Safety Report 10466883 (Version 1)
Quarter: 2014Q3

REPORT INFORMATION
  Report Type: Spontaneous
  Country: US (occurrence: None)
  Receive Date: 20140919
  Receipt Date: 20140919
  Transmission Date: 20150326
  Serious: No
  Sender: FDA-Public Use
  Company Number: None

PATIENT
  Age: 63 Year
  Sex: Female

DRUGS (2)
  1. EXEMESTANE. [Suspect]
     Active Substance: EXEMESTANE
     Indication: METASTATIC NEOPLASM
     Route: 048
     Dates: start: 20140731
  2. AFINITOR [Suspect]
     Active Substance: EVEROLIMUS
     Indication: METASTATIC NEOPLASM
     Route: 048
     Dates: start: 20140731

REACTIONS (6)
  - Headache [None]
  - Decreased appetite [None]
  - Dysgeusia [None]
  - Drug dose omission [None]
  - Nausea [None]
  - Fatigue [None]

NARRATIVE: CASE EVENT DATE: 20140731
